FAERS Safety Report 5728951-6 (Version None)
Quarter: 2008Q2

REPORT INFORMATION
  Report Type: 
  Country: None (occurrence: None)
  Receive Date: 20080506
  Receipt Date: 20080424
  Transmission Date: 20081010
  Serious: Yes (Death)
  Sender: FDA-Public Use
  Company Number: US-BAYER-200810169BCC

PATIENT
  Age: 85 Year
  Sex: Male

DRUGS (1)
  1. PHILLIPS'MILK OF MAGNESIA LIQUID [Suspect]
     Indication: CONSTIPATION
     Route: 048

REACTIONS (2)
  - MYOCARDIAL INFARCTION [None]
  - NAUSEA [None]
